FAERS Safety Report 15894957 (Version 1)
Quarter: 2019Q1

REPORT INFORMATION
  Report Type: Spontaneous
  Country: CA (occurrence: CA)
  Receive Date: 20190131
  Receipt Date: 20190131
  Transmission Date: 20190417
  Serious: Yes (Hospitalization, Other)
  Sender: FDA-Public Use
  Company Number: CA-TEVA-2019-CA-1004341

PATIENT
  Age: 11 Year
  Sex: Female

DRUGS (12)
  1. CYCLOSPORINE. [Suspect]
     Active Substance: CYCLOSPORINE
     Indication: STEVENS-JOHNSON SYNDROME
     Dosage: 5 MG/KG DAILY;
     Route: 065
  2. CYCLOSPORINE. [Suspect]
     Active Substance: CYCLOSPORINE
     Indication: OVERLAP SYNDROME
  3. SULFAMETHOXAZOLE/TRIMETHOPRIM [Suspect]
     Active Substance: SULFAMETHOXAZOLE\TRIMETHOPRIM
     Indication: POSTOPERATIVE WOUND INFECTION
     Route: 048
  4. MEROPENEM. [Concomitant]
     Active Substance: MEROPENEM
     Indication: POSTOPERATIVE WOUND INFECTION
     Route: 042
  5. METHYLPREDNISOLONE. [Concomitant]
     Active Substance: METHYLPREDNISOLONE
     Indication: TOXIC EPIDERMAL NECROLYSIS
  6. CYCLOSPORINE. [Suspect]
     Active Substance: CYCLOSPORINE
     Indication: TOXIC EPIDERMAL NECROLYSIS
  7. CIPROFLOXACIN. [Concomitant]
     Active Substance: CIPROFLOXACIN
     Indication: POSTOPERATIVE WOUND INFECTION
     Route: 048
  8. METHYLPREDNISOLONE. [Concomitant]
     Active Substance: METHYLPREDNISOLONE
     Indication: OVERLAP SYNDROME
  9. ETANERCEPT [Concomitant]
     Active Substance: ETANERCEPT
     Indication: OVERLAP SYNDROME
  10. ETANERCEPT [Concomitant]
     Active Substance: ETANERCEPT
     Indication: TOXIC EPIDERMAL NECROLYSIS
  11. METHYLPREDNISOLONE. [Concomitant]
     Active Substance: METHYLPREDNISOLONE
     Indication: STEVENS-JOHNSON SYNDROME
     Dosage: 30 MG/KG DAILY;
     Route: 042
  12. ETANERCEPT [Concomitant]
     Active Substance: ETANERCEPT
     Indication: STEVENS-JOHNSON SYNDROME
     Dosage: 1 DOSAGE FORMS DAILY; RECEIVED A TOTAL OF 2 DOSES
     Route: 058

REACTIONS (6)
  - Hypertension [Unknown]
  - Stevens-Johnson syndrome [Unknown]
  - Toxic epidermal necrolysis [Unknown]
  - Overlap syndrome [Unknown]
  - Posterior reversible encephalopathy syndrome [Unknown]
  - Seizure [Unknown]
